FAERS Safety Report 4755537-2 (Version None)
Quarter: 2005Q3

REPORT INFORMATION
  Report Type: 
  Country: None (occurrence: None)
  Receive Date: 20050830
  Receipt Date: 20050510
  Transmission Date: 20060218
  Serious: Yes (Other)
  Sender: FDA-Public Use
  Company Number: US-BRISTOL-MYERS SQUIBB COMPANY-12962429

PATIENT
  Age: 16 Year
  Sex: Female

DRUGS (2)
  1. ABILIFY [Suspect]
     Route: 048
     Dates: start: 20050507, end: 20050507
  2. ZOLOFT [Concomitant]

REACTIONS (2)
  - GRAND MAL CONVULSION [None]
  - VOMITING PROJECTILE [None]
